FAERS Safety Report 6370686-3 (Version None)
Quarter: 2009Q3

REPORT INFORMATION
  Report Type: 
  Country: None (occurrence: None)
  Receive Date: 20090923
  Receipt Date: 20070703
  Transmission Date: 20100115
  Serious: No
  Sender: FDA-Public Use
  Company Number: US-ASTRAZENECA-2006UW26134

PATIENT
  Age: 43 Year
  Sex: Female
  Weight: 88 kg

DRUGS (11)
  1. SEROQUEL [Suspect]
     Indication: BIPOLAR DISORDER
     Route: 048
     Dates: start: 19980101, end: 20060101
  2. SEROQUEL [Suspect]
     Indication: SLEEP DISORDER
     Route: 048
     Dates: start: 19980101, end: 20060101
  3. SEROQUEL [Suspect]
     Route: 048
     Dates: start: 20020828
  4. SEROQUEL [Suspect]
     Route: 048
     Dates: start: 20020828
  5. HALDOL [Concomitant]
     Dates: start: 20050101
  6. RISPERDAL [Concomitant]
     Dates: start: 20050101
  7. ZYPREXA [Concomitant]
     Dates: start: 20050101
  8. DEPAKOTE [Concomitant]
  9. ZOLOFT [Concomitant]
  10. TRAZODONE [Concomitant]
  11. TRILEPTAL [Concomitant]

REACTIONS (9)
  - DIABETES MELLITUS [None]
  - GESTATIONAL DIABETES [None]
  - GLYCOSURIA [None]
  - HYPERGLYCAEMIA [None]
  - HYPERLIPIDAEMIA [None]
  - OBESITY [None]
  - OVERDOSE [None]
  - SCHIZOPHRENIA [None]
  - TYPE 2 DIABETES MELLITUS [None]
